FAERS Safety Report 8616705-2 (Version None)
Quarter: 2012Q3

REPORT INFORMATION
  Report Type: 
  Country: None (occurrence: None)
  Receive Date: 20120823
  Receipt Date: 20120822
  Transmission Date: 20120928
  Serious: Yes (Other)
  Sender: FDA-Public Use
  Company Number: US-ROCHE-1105925

PATIENT
  Age: 18 Year
  Sex: Female

DRUGS (2)
  1. RITUXAN [Suspect]
     Indication: LUPUS NEPHRITIS
     Dates: start: 20120817
  2. CYCLOPHOSPHAMIDE [Concomitant]

REACTIONS (2)
  - THROMBOTIC THROMBOCYTOPENIC PURPURA [None]
  - HAEMOLYTIC ANAEMIA [None]
